FAERS Safety Report 24135337 (Version 1)
Quarter: 2024Q3

REPORT INFORMATION
  Report Type: Spontaneous
  Country: IN (occurrence: IN)
  Receive Date: 20240725
  Receipt Date: 20240725
  Transmission Date: 20241017
  Serious: Yes (Other)
  Sender: SANDOZ
  Company Number: IN-SANDOZ-SDZ2024IN052830

PATIENT
  Age: 50 Year
  Sex: Male

DRUGS (2)
  1. MYFORTIC [Suspect]
     Active Substance: MYCOPHENOLATE SODIUM
     Indication: Renal transplant
     Dosage: 720 MG, QD (360 MG, BID)
     Route: 048
     Dates: start: 20230131
  2. TACROLIMUS [Suspect]
     Active Substance: TACROLIMUS
     Indication: Renal transplant
     Dosage: 2 MG, QD (1 MG, BID)
     Route: 048
     Dates: start: 20230131

REACTIONS (5)
  - Chronic kidney disease [Unknown]
  - Hypothyroidism [Unknown]
  - Diarrhoea [Not Recovered/Not Resolved]
  - Skin lesion [Unknown]
  - Hypertension [Unknown]

NARRATIVE: CASE EVENT DATE: 20240427
